FAERS Safety Report 6964698-6 (Version None)
Quarter: 2010Q3

REPORT INFORMATION
  Report Type: 
  Country: None (occurrence: None)
  Receive Date: 20100903
  Receipt Date: 20100824
  Transmission Date: 20110219
  Serious: Yes (Death)
  Sender: FDA-Public Use
  Company Number: BR-CUBIST-2010S1001314

PATIENT
  Age: 67 Year
  Sex: Female

DRUGS (2)
  1. CUBICIN [Suspect]
     Indication: ARTHRITIS BACTERIAL
  2. CUBICIN [Suspect]
     Indication: OSTEOMYELITIS

REACTIONS (2)
  - EOSINOPHILIC PNEUMONIA [None]
  - PNEUMONIA BACTERIAL [None]
